FAERS Safety Report 23599118 (Version 1)
Quarter: 2024Q1

REPORT INFORMATION
  Report Type: Spontaneous
  Country: US (occurrence: US)
  Receive Date: 20240306
  Receipt Date: 20240306
  Transmission Date: 20240409
  Serious: Yes (Hospitalization, Other)
  Sender: FDA-Public Use
  Company Number: US-HORIZON THERAPEUTICS-HZN-2023-003545

PATIENT

DRUGS (12)
  1. RAVICTI [Suspect]
     Active Substance: GLYCEROL PHENYLBUTYRATE
     Indication: Urea cycle disorder
     Dosage: FIRST DOSE
     Route: 048
     Dates: start: 2023
  2. RAVICTI [Suspect]
     Active Substance: GLYCEROL PHENYLBUTYRATE
     Dosage: ORAL SOLUTION 0.308 G, ORAL, Q6H (RESP)
     Route: 048
  3. RAVICTI [Suspect]
     Active Substance: GLYCEROL PHENYLBUTYRATE
     Dosage: 125 MG/KG Q6H (500 MG/KG/D)
     Route: 048
  4. RAVICTI [Suspect]
     Active Substance: GLYCEROL PHENYLBUTYRATE
     Dosage: 0.3 ML (0.33 G TOTAL) BY MOUTH EVERY 6 (SIX) HOURS (1.1 GRAM/ML ORAL SOLUTION, DISPENSE 50ML, REFILL
     Route: 048
     Dates: start: 20230425
  5. RAVICTI [Suspect]
     Active Substance: GLYCEROL PHENYLBUTYRATE
     Dosage: 0.3 ML (0.33 G TOTAL) BY MOUTH EVERY 6 (SIX) HOURS (1.1 GRAM/ML ORAL SOLUTION, DISPENSE 50ML, REFILL
     Route: 048
     Dates: start: 20230605
  6. ARGININE [Concomitant]
     Active Substance: ARGININE
     Dosage: 100 MG/ML ORAL SOLUTION 371 MG, ORAL, Q6H (RESP)
     Route: 048
  7. ARGININE [Concomitant]
     Active Substance: ARGININE
     Dosage: 150 MG/KG Q6H (600 MG/KG/D)
  8. HEPARIN SODIUM [Concomitant]
     Active Substance: HEPARIN SODIUM
     Dosage: 10 UNIT/ML INJECTION SYRINGE 20 UNITS, INTRAVENOUS, DAILY SCH
  9. HEPARIN SODIUM [Concomitant]
     Active Substance: HEPARIN SODIUM
     Dosage: 10 UNIT/ML INJECTION SYRINGE 20 UNITS, INTRAVENOUS, PRN
  10. LIDOCAINE [Concomitant]
     Active Substance: LIDOCAINE
     Dosage: 4 % CREAM, TOPICAL, PRN
     Route: 061
  11. Polyvisol [Concomitant]
     Dosage: 250 MCG-50 MG-10 MCG/ML SOLUTION 1 ML, PER NG TUBE, DAILY SCH
  12. SIMETHICONE (DIMETHICONE) [Concomitant]
     Active Substance: DIMETHICONE
     Dosage: 20 MG ORAL, Q6H PRN
     Route: 048

REACTIONS (3)
  - Neutropenia [Not Recovered/Not Resolved]
  - Ammonia abnormal [Unknown]
  - Anaemia [Unknown]

NARRATIVE: CASE EVENT DATE: 20230101
